FAERS Safety Report 6146258-2 (Version None)
Quarter: 2009Q2

REPORT INFORMATION
  Report Type: 
  Country: None (occurrence: None)
  Receive Date: 20090406
  Receipt Date: 20090406
  Transmission Date: 20091009
  Serious: Yes (Other)
  Sender: FDA-Public Use
  Company Number: None

PATIENT
  Sex: Male
  Weight: 80.2867 kg

DRUGS (4)
  1. LOVENOX [Suspect]
     Indication: COAGULOPATHY
     Dosage: 80/ MG; 0.8ML EVERY 12 HRS 057
     Dates: start: 20080803, end: 20080902
  2. HYDROXYUREA [Concomitant]
  3. ALLOPURINOL [Concomitant]
  4. COUMADIN [Concomitant]

REACTIONS (2)
  - DYSPNOEA [None]
  - THROAT TIGHTNESS [None]
